FAERS Safety Report 15450071 (Version 1)
Quarter: 2018Q4

REPORT INFORMATION
  Report Type: Spontaneous
  Country: US (occurrence: US)
  Receive Date: 20181001
  Receipt Date: 20181001
  Transmission Date: 20190204
  Serious: No
  Sender: FDA-Public Use
  Company Number: US-PFIZER INC-2018391350

PATIENT
  Age: 68 Year
  Sex: Female

DRUGS (2)
  1. GABAPENTIN. [Suspect]
     Active Substance: GABAPENTIN
     Dosage: DOSE INCREASED
  2. GABAPENTIN. [Suspect]
     Active Substance: GABAPENTIN
     Dosage: UNK

REACTIONS (1)
  - Drug intolerance [Unknown]
